FAERS Safety Report 19367377 (Version 1)
Quarter: 2021Q2

REPORT INFORMATION
  Report Type: Spontaneous
  Country: IN (occurrence: IN)
  Receive Date: 20210603
  Receipt Date: 20210603
  Transmission Date: 20210717
  Serious: Yes (Death, Other)
  Sender: FDA-Public Use
  Company Number: IN-ASTELLAS-2021US020003

PATIENT
  Age: 6 Year
  Sex: Male

DRUGS (1)
  1. TACROLIMUS. [Suspect]
     Active Substance: TACROLIMUS
     Indication: LIVER TRANSPLANT
     Dosage: 0.25 MG, UNKNOWN FREQ. (POD 2)
     Route: 065

REACTIONS (2)
  - Burkholderia cepacia complex sepsis [Fatal]
  - Necrotising colitis [Fatal]
